FAERS Safety Report 17146356 (Version 1)
Quarter: 2019Q4

REPORT INFORMATION
  Report Type: Spontaneous
  Country: FR (occurrence: FR)
  Receive Date: 20191212
  Receipt Date: 20191212
  Transmission Date: 20200122
  Serious: Yes (Other)
  Sender: FDA-Public Use
  Company Number: FR-TEVA-2019-FR-1149652

PATIENT
  Age: 74 Year
  Sex: Female

DRUGS (3)
  1. DOXYCYCLINE. [Suspect]
     Active Substance: DOXYCYCLINE
     Indication: SEBORRHOEIC DERMATITIS
     Route: 048
     Dates: start: 20191011, end: 20191018
  2. ERYTHROMYCINE [Suspect]
     Active Substance: ERYTHROMYCIN
     Indication: SEBORRHOEIC DERMATITIS
     Route: 003
     Dates: start: 20191011, end: 20191018
  3. LAMISIL [Suspect]
     Active Substance: TERBINAFINE HYDROCHLORIDE
     Indication: FUNGAL INFECTION
     Dosage: 1 DF
     Route: 048
     Dates: start: 20191010, end: 20191018

REACTIONS (1)
  - Acute generalised exanthematous pustulosis [Recovered/Resolved]

NARRATIVE: CASE EVENT DATE: 20191013
